FAERS Safety Report 8886754 (Version 2)
Quarter: 2013Q1

REPORT INFORMATION
  Report Type: Spontaneous
  Country: US (occurrence: US)
  Receive Date: 20121105
  Receipt Date: 20130318
  Transmission Date: 20140127
  Serious: No
  Sender: FDA-Public Use
  Company Number: US-009507513-1211USA000886

PATIENT
  Age: 62 None
  Sex: Female

DRUGS (2)
  1. ZIOPTAN [Suspect]
     Indication: GLAUCOMA
     Dosage: 1 NIGHT ONLY
     Route: 047
     Dates: start: 201206, end: 201206
  2. ZIOPTAN [Suspect]
     Dosage: UNK
     Route: 047
     Dates: start: 201206

REACTIONS (2)
  - Dizziness [Recovered/Resolved]
  - Dizziness [Recovered/Resolved]
